FAERS Safety Report 16619172 (Version 4)
Quarter: 2020Q4

REPORT INFORMATION
  Report Type: Report from Study
  Country: DE (occurrence: DE)
  Receive Date: 20190723
  Receipt Date: 20201002
  Transmission Date: 20210113
  Serious: Yes (Hospitalization, Other)
  Sender: FDA-Public Use
  Company Number: PHHY2019DE169995

PATIENT
  Age: 53 Year
  Sex: Female
  Weight: 75 kg

DRUGS (8)
  1. PANTOPRAZOLE [Concomitant]
     Active Substance: PANTOPRAZOLE
     Indication: PRODUCT USED FOR UNKNOWN INDICATION
     Dosage: 1 DF, QD (MORNING)
     Route: 065
  2. PANTOPRAZOLE [Concomitant]
     Active Substance: PANTOPRAZOLE
     Dosage: 1X 40 MG, 1X DAILY (MORNING)
     Route: 065
     Dates: start: 20190808
  3. LETROZOLE. [Suspect]
     Active Substance: LETROZOLE
     Indication: BREAST CANCER METASTATIC
     Dosage: 2.5 MG, QD (IN THE EVENINGS)
     Route: 048
     Dates: start: 20190107, end: 20190913
  4. CHOLECALCIFEROL [Concomitant]
     Active Substance: CHOLECALCIFEROL
     Indication: PRODUCT USED FOR UNKNOWN INDICATION
     Dosage: 1 DF, QD (MORNING)
     Route: 065
  5. NOVAMINSULFON [Concomitant]
     Active Substance: METAMIZOLE
     Indication: PAIN
     Dosage: UNK UNK, PRN
     Route: 048
  6. KISQALI [Suspect]
     Active Substance: RIBOCICLIB
     Indication: BREAST CANCER METASTATIC
     Dosage: 600 MG, QD (SCHEME 21 DAYS INTAKE, 7 DAYS PAUSE)
     Route: 048
     Dates: start: 20190128, end: 20190913
  7. CHOLECALCIFEROL [Concomitant]
     Active Substance: CHOLECALCIFEROL
     Dosage: 1X 500 IU, 1X DAILY (MORNING)
     Route: 065
     Dates: start: 20190808
  8. ZOMETA [Concomitant]
     Active Substance: ZOLEDRONIC ACID
     Indication: PAIN
     Dosage: 4 MG, Q4W
     Route: 041
     Dates: start: 20190128

REACTIONS (16)
  - Pleural effusion [Recovering/Resolving]
  - Pleural effusion [Recovered/Resolved]
  - Breath sounds abnormal [Unknown]
  - Dyspnoea [Recovered/Resolved]
  - Pleural effusion [Recovered/Resolved]
  - Weight increased [Unknown]
  - Food allergy [Unknown]
  - Rash [Unknown]
  - Haemoglobin decreased [Recovered/Resolved]
  - Emphysema [Unknown]
  - Fatigue [Unknown]
  - Aortic arteriosclerosis [Unknown]
  - Hypocalcaemia [Recovered/Resolved]
  - Rash [Recovered/Resolved]
  - Aortic elongation [Unknown]
  - General physical health deterioration [Unknown]

NARRATIVE: CASE EVENT DATE: 20190715
